FAERS Safety Report 8412689-0 (Version None)
Quarter: 2012Q2

REPORT INFORMATION
  Report Type: 
  Country: None (occurrence: None)
  Receive Date: 20120323
  Receipt Date: 20110512
  Transmission Date: 20120825
  Serious: Yes (Hospitalization)
  Sender: FDA-Public Use
  Company Number: 163-21880-11021013

PATIENT
  Age: 60 Year
  Sex: Female
  Weight: 56.246 kg

DRUGS (4)
  1. REVLIMID [Suspect]
     Indication: MULTIPLE MYELOMA
     Dosage: 25 MG, 1 IN 1 D, PO;
     Route: 048
     Dates: start: 20071001
  2. REVLIMID [Suspect]
     Indication: MULTIPLE MYELOMA
     Dosage: 10 MG, DAILY X 14 DAYS, PO; 5 MG, 1 IN 1 D, PO
     Route: 048
     Dates: start: 20090901
  3. REVLIMID [Suspect]
     Indication: MULTIPLE MYELOMA
     Dosage: 10 MG, DAILY X 14 DAYS, PO; 5 MG, 1 IN 1 D, PO
     Route: 048
     Dates: start: 20100201
  4. CHOLESTRYAMINE [Concomitant]

REACTIONS (4)
  - HYPOKALAEMIA [None]
  - DIARRHOEA [None]
  - HYPOMAGNESAEMIA [None]
  - PRURITUS [None]
